FAERS Safety Report 6795940-2 (Version None)
Quarter: 2010Q2

REPORT INFORMATION
  Report Type: 
  Country: None (occurrence: None)
  Receive Date: 20100625
  Receipt Date: 20100617
  Transmission Date: 20101027
  Serious: Yes (Hospitalization)
  Sender: FDA-Public Use
  Company Number: B0661010A

PATIENT
  Age: 88 Year
  Sex: Female

DRUGS (2)
  1. ARIXTRA [Suspect]
     Indication: DEEP VEIN THROMBOSIS
     Dosage: 5MG UNKNOWN
     Route: 058
     Dates: start: 20091015, end: 20100416
  2. ANTIVITAMINS K [Concomitant]
     Indication: DEEP VEIN THROMBOSIS
     Route: 065

REACTIONS (2)
  - HAEMATOMA [None]
  - INCORRECT DRUG ADMINISTRATION DURATION [None]
